FAERS Safety Report 5065500-2 (Version None)
Quarter: 2006Q3

REPORT INFORMATION
  Report Type: 
  Country: None (occurrence: None)
  Receive Date: 20060725
  Receipt Date: 20060714
  Transmission Date: 20061208
  Serious: Yes (Hospitalization, Disabling, Other)
  Sender: FDA-Public Use
  Company Number: 2006-BP-08122RO

PATIENT
  Age: 77 Year
  Sex: Female

DRUGS (8)
  1. CITALOPRAM HYDROBROMIDE [Suspect]
     Indication: DEPRESSION
  2. LORAZEPAM [Suspect]
     Indication: CATATONIA
  3. DIGOXIN [Concomitant]
  4. ENALAPRIL MALEATE [Concomitant]
  5. SIMVASTATIN [Concomitant]
  6. PENMIX INSULIN (HUMAN MIXTARD) [Concomitant]
  7. ASPIRIN [Concomitant]
  8. CEFUROXIME [Concomitant]

REACTIONS (8)
  - CEREBRAL ATROPHY [None]
  - CEREBRAL INFARCTION [None]
  - DEHYDRATION [None]
  - DELIRIUM [None]
  - DEPRESSED LEVEL OF CONSCIOUSNESS [None]
  - EXTRAPYRAMIDAL DISORDER [None]
  - GENERAL PHYSICAL HEALTH DETERIORATION [None]
  - LIVER FUNCTION TEST ABNORMAL [None]
